FAERS Safety Report 9458668 (Version 2)
Quarter: 2013Q3

REPORT INFORMATION
  Report Type: Spontaneous
  Country: US (occurrence: None)
  Receive Date: 20130812
  Receipt Date: 20130823
  Transmission Date: 20140515
  Serious: Yes (Other)
  Sender: FDA-Public Use
  Company Number: AUR-APL-2013-06429

PATIENT
  Sex: Female

DRUGS (1)
  1. SERTRALINE [Suspect]
     Indication: ANXIETY
     Dates: start: 201305

REACTIONS (3)
  - Decreased appetite [None]
  - Hypothyroidism [None]
  - Fatigue [None]
